FAERS Safety Report 18550083 (Version 5)
Quarter: 2021Q1

REPORT INFORMATION
  Report Type: Report from Study
  Country: US (occurrence: US)
  Receive Date: 20201126
  Receipt Date: 20210115
  Transmission Date: 20210419
  Serious: Yes (Death)
  Sender: FDA-Public Use
  Company Number: NVSC2020US315928

PATIENT
  Age: 84 Year
  Sex: Male

DRUGS (1)
  1. COSENTYX [Suspect]
     Active Substance: SECUKINUMAB
     Indication: PSORIASIS
     Dosage: UNK UNK, UNKNOWN
     Route: 030

REACTIONS (2)
  - Death [Fatal]
  - Incorrect route of product administration [Unknown]

NARRATIVE: CASE EVENT DATE: 20200709
